FAERS Safety Report 8491928-4 (Version None)
Quarter: 2012Q3

REPORT INFORMATION
  Report Type: 
  Country: None (occurrence: None)
  Receive Date: 20120706
  Receipt Date: 20120321
  Transmission Date: 20120928
  Serious: No
  Sender: FDA-Public Use
  Company Number: US-GLAXOSMITHKLINE-A0970601A

PATIENT
  Age: 76 Year
  Sex: Female
  Weight: 70.9 kg

DRUGS (8)
  1. AEROCHAMBER [Suspect]
     Indication: ASTHMA
  2. HYDREA [Concomitant]
  3. NITROGEN MONOXIDE [Concomitant]
  4. CEPHALEXIN [Concomitant]
  5. XOPENEX [Suspect]
     Indication: ASTHMA
     Route: 055
  6. AMLODIPINE [Concomitant]
  7. FLOVENT [Suspect]
     Indication: ASTHMA
     Dosage: 1PUFF TWICE PER DAY
     Route: 055
     Dates: start: 20110321
  8. AZITHROMYCIN [Concomitant]

REACTIONS (4)
  - DIZZINESS [None]
  - HYPERTENSION [None]
  - BRONCHITIS [None]
  - COUGH [None]
